FAERS Safety Report 23275842 (Version 1)
Quarter: 2023Q4

REPORT INFORMATION
  Report Type: Spontaneous
  Country: US (occurrence: US)
  Receive Date: 20231208
  Receipt Date: 20231208
  Transmission Date: 20240110
  Serious: Yes (Other)
  Sender: FDA-Public Use
  Company Number: US-BAYER-2023A173620

PATIENT

DRUGS (1)
  1. AFRIN ORIGINAL NASAL [Suspect]
     Active Substance: OXYMETAZOLINE HYDROCHLORIDE
     Indication: Epistaxis
     Dosage: 2 DF
     Route: 045

REACTIONS (3)
  - Drug dependence [None]
  - Rebound nasal congestion [None]
  - Drug effective for unapproved indication [None]
